FAERS Safety Report 17436824 (Version 6)
Quarter: 2020Q3

REPORT INFORMATION
  Report Type: Report from Study
  Country: NL (occurrence: NL)
  Receive Date: 20200219
  Receipt Date: 20200715
  Transmission Date: 20201102
  Serious: Yes (Hospitalization)
  Sender: FDA-Public Use
  Company Number: NL-EXELIXIS-XL18420027452

PATIENT
  Age: 59 Year
  Sex: Male
  Weight: 95 kg

DRUGS (3)
  1. XL184 [Suspect]
     Active Substance: CABOZANTINIB
     Indication: THYROID CANCER
     Dosage: 60 MG, QD
     Route: 048
     Dates: start: 20191219
  2. CALCIUM VIT D [Concomitant]
     Active Substance: CALCIUM\CHOLECALCIFEROL
  3. ALFACALCIDOL [Concomitant]
     Active Substance: ALFACALCIDOL

REACTIONS (4)
  - Hypercalcaemia [Recovering/Resolving]
  - Hypertension [Recovering/Resolving]
  - Posterior reversible encephalopathy syndrome [Recovered/Resolved]
  - Renal impairment [Recovering/Resolving]

NARRATIVE: CASE EVENT DATE: 20200211
